FAERS Safety Report 5322044-8 (Version None)
Quarter: 2007Q2

REPORT INFORMATION
  Report Type: 
  Country: None (occurrence: None)
  Receive Date: 20070508
  Receipt Date: 20070508
  Transmission Date: 20071010
  Serious: Yes (Other)
  Sender: FDA-Public Use
  Company Number: None

PATIENT
  Sex: Male
  Weight: 74.8435 kg

DRUGS (1)
  1. DAYTRANA [Suspect]
     Indication: ATTENTION DEFICIT/HYPERACTIVITY DISORDER
     Dosage: 10MG QD TRANSDERMAL
     Route: 062
     Dates: start: 20070426, end: 20070501

REACTIONS (3)
  - APPLICATION SITE BLEEDING [None]
  - APPLICATION SITE EXCORIATION [None]
  - PHARMACEUTICAL PRODUCT COMPLAINT [None]
